FAERS Safety Report 8024651-0 (Version None)
Quarter: 2012Q1

REPORT INFORMATION
  Report Type: 
  Country: None (occurrence: None)
  Receive Date: 20120103
  Receipt Date: 20111221
  Transmission Date: 20120608
  Serious: Yes (Hospitalization)
  Sender: FDA-Public Use
  Company Number: DSA_48588_2011

PATIENT
  Age: 50 Year
  Sex: Female

DRUGS (4)
  1. VENLAFAXINE [Suspect]
     Indication: PRODUCT USED FOR UNKNOWN INDICATION
     Dosage: (1050 MG, NOT THE PRESCRIBED AMOUNT)
  2. MOCLOBEMIDE (MOCLOBEMIDE) [Suspect]
     Indication: PRODUCT USED FOR UNKNOWN INDICATION
     Dosage: 4500 MG, NOT THE PRESCRIBED AMOUNT)
  3. CYSTINE (CYSTINE) [Suspect]
     Indication: PRODUCT USED FOR UNKNOWN INDICATION
     Dosage: (NOT THE PRESCRIBED AMOUNT)
  4. MIANSERIN (MIANSERIN) [Suspect]
     Indication: PRODUCT USED FOR UNKNOWN INDICATION
     Dosage: (300 MG, (NOT THE PRESCRIBED AMOUNT)

REACTIONS (7)
  - SEROTONIN SYNDROME [None]
  - LOSS OF CONSCIOUSNESS [None]
  - ALCOHOL POISONING [None]
  - WHITE BLOOD CELL COUNT INCREASED [None]
  - SUICIDE ATTEMPT [None]
  - TOXICITY TO VARIOUS AGENTS [None]
  - ACUTE RESPIRATORY FAILURE [None]
